FAERS Safety Report 11631787 (Version 1)
Quarter: 2015Q4

REPORT INFORMATION
  Report Type: Spontaneous
  Country: US (occurrence: None)
  Receive Date: 20151013
  Receipt Date: 20151013
  Transmission Date: 20160304
  Serious: Yes (Hospitalization, Other)
  Sender: FDA-Public Use
  Company Number: 1713747-2015-999369

PATIENT
  Age: 74 Year
  Sex: Female
  Weight: 60.78 kg

DRUGS (2)
  1. INSULIN (NAME UNKNOWN) [Concomitant]
  2. DELFLEX [Suspect]
     Active Substance: CALCIUM CHLORIDE\DEXTROSE MONOHYDRATE\MAGNESIUM CHLORIDE\SODIUM CHLORIDE\SODIUM LACTATE
     Indication: CHRONIC KIDNEY DISEASE
     Route: 033
     Dates: start: 2012

REACTIONS (2)
  - Hyperhidrosis [None]
  - Blood glucose decreased [None]

NARRATIVE: CASE EVENT DATE: 20150924
